FAERS Safety Report 6590338-4 (Version None)
Quarter: 2010Q1

REPORT INFORMATION
  Report Type: 
  Country: None (occurrence: None)
  Receive Date: 20100219
  Receipt Date: 20100210
  Transmission Date: 20100710
  Serious: Yes (Other)
  Sender: FDA-Public Use
  Company Number: US-KINGPHARMUSA00001-K201000152

PATIENT
  Age: 43 Year
  Sex: Female
  Weight: 58.957 kg

DRUGS (1)
  1. FLECTOR [Suspect]
     Dosage: 1 PATCH, BID PRN
     Route: 061

REACTIONS (2)
  - ARRHYTHMIA [None]
  - PALPITATIONS [None]
